FAERS Safety Report 7221237-2 (Version None)
Quarter: 2011Q1

REPORT INFORMATION
  Report Type: 
  Country: None (occurrence: None)
  Receive Date: 20110112
  Receipt Date: 20110111
  Transmission Date: 20110831
  Serious: Yes (Death, Life-Threatening)
  Sender: FDA-Public Use
  Company Number: TH-SANOFI-AVENTIS-2011SA001783

PATIENT
  Age: 54 Year
  Sex: Female
  Weight: 54.7 kg

DRUGS (3)
  1. 5-FU [Suspect]
     Route: 041
     Dates: start: 20101005, end: 20101008
  2. DOCETAXEL [Suspect]
     Route: 041
     Dates: start: 20101005, end: 20101005
  3. CISPLATIN [Suspect]
     Route: 042
     Dates: start: 20101005, end: 20101005

REACTIONS (6)
  - SEPSIS [None]
  - HYPONATRAEMIA [None]
  - HYPOTENSION [None]
  - FEBRILE NEUTROPENIA [None]
  - HYPOKALAEMIA [None]
  - LOSS OF CONSCIOUSNESS [None]
